FAERS Safety Report 10169036 (Version 1)
Quarter: 2014Q2

REPORT INFORMATION
  Report Type: Spontaneous
  Country: US (occurrence: None)
  Receive Date: 20140509
  Receipt Date: 20140509
  Transmission Date: 20141212
  Serious: Yes (Other)
  Sender: FDA-Public Use
  Company Number: UTC-048291

PATIENT
  Age: 52 Year
  Sex: Male

DRUGS (1)
  1. TYVASO [Suspect]
     Indication: PULMONARY HYPERTENSION
     Route: 055
     Dates: start: 20130424

REACTIONS (2)
  - Prostate cancer [None]
  - Dizziness [None]
